FAERS Safety Report 5566425-6 (Version None)
Quarter: 2007Q4

REPORT INFORMATION
  Report Type: 
  Country: None (occurrence: None)
  Receive Date: 20071219
  Receipt Date: 20071213
  Transmission Date: 20080405
  Serious: Yes (Hospitalization, Other)
  Sender: FDA-Public Use
  Company Number: US-ASTRAZENECA-2007UW28442

PATIENT
  Age: 65 Year
  Sex: Female
  Weight: 49 kg

DRUGS (4)
  1. ENTOCORT EC [Suspect]
     Indication: CROHN'S DISEASE
     Route: 048
     Dates: start: 20040101
  2. LORAZEPAM [Concomitant]
  3. VICODIN [Concomitant]
  4. ESTROGEN [Concomitant]

REACTIONS (6)
  - ADRENAL DISORDER [None]
  - CATARACT [None]
  - CONTUSION [None]
  - FATIGUE [None]
  - INTESTINAL OBSTRUCTION [None]
  - OSTEOPOROSIS [None]
